FAERS Safety Report 7986227-0 (Version None)
Quarter: 2011Q4

REPORT INFORMATION
  Report Type: 
  Country: None (occurrence: None)
  Receive Date: 20111216
  Receipt Date: 20111207
  Transmission Date: 20120403
  Serious: Yes (Hospitalization, Other)
  Sender: FDA-Public Use
  Company Number: NO-GLAXOSMITHKLINE-B0768761A

PATIENT
  Sex: Male

DRUGS (6)
  1. SEROQUEL [Concomitant]
     Route: 065
  2. LAMICTAL [Suspect]
     Indication: DEPRESSION
     Route: 065
     Dates: start: 20110814
  3. VENLAFAXINE [Concomitant]
  4. EFFEXOR [Concomitant]
     Route: 065
  5. WELLBUTRIN [Suspect]
     Indication: DEPRESSION
     Route: 065
     Dates: start: 20110814
  6. ATENOLOL [Concomitant]
     Indication: FLUSHING
     Route: 065

REACTIONS (7)
  - HYPOMANIA [None]
  - FLUSHING [None]
  - PSYCHOTIC DISORDER [None]
  - DRY MOUTH [None]
  - SLEEP DISORDER [None]
  - HYPERHIDROSIS [None]
  - MANIA [None]
